FAERS Safety Report 6388311-4 (Version None)
Quarter: 2009Q3

REPORT INFORMATION
  Report Type: 
  Country: None (occurrence: None)
  Receive Date: 20090930
  Receipt Date: 20090928
  Transmission Date: 20100115
  Serious: Yes (Hospitalization)
  Sender: FDA-Public Use
  Company Number: 2009SP027182

PATIENT
  Age: 57 Year
  Sex: Male

DRUGS (2)
  1. RIBAVIRIN [Suspect]
     Indication: HEPATITIS C
     Dosage: PO
     Route: 048
  2. PEG INTERFERON (INTERFERONS) [Suspect]
     Indication: HEPATITIS C
     Dosage: SC
     Route: 058

REACTIONS (2)
  - GLOMERULONEPHRITIS RAPIDLY PROGRESSIVE [None]
  - TUBULOINTERSTITIAL NEPHRITIS [None]
